FAERS Safety Report 5375079-3 (Version None)
Quarter: 2007Q2

REPORT INFORMATION
  Report Type: 
  Country: None (occurrence: None)
  Receive Date: 20070625
  Receipt Date: 20070316
  Transmission Date: 20071010
  Serious: No
  Sender: FDA-Public Use
  Company Number: 07P-163-0362385-00

PATIENT
  Age: 63 Year
  Sex: Female
  Weight: 95.5 kg

DRUGS (6)
  1. HUMIRA [Suspect]
     Indication: PSORIASIS
     Dosage: 40 MG, 1 IN 2 WK, SUBCUTANEOUS
     Route: 058
     Dates: start: 20060818, end: 20070316
  2. COUMADIN [Concomitant]
  3. PRAVASTATIN SODIUM [Concomitant]
  4. LEXAPRO [Concomitant]
  5. METOPROLOL SUCCINATE [Concomitant]
  6. LEVOTHRYOXINE SODIUM [Concomitant]

REACTIONS (1)
  - BREAST CANCER [None]
